FAERS Safety Report 7676913-4 (Version None)
Quarter: 2011Q3

REPORT INFORMATION
  Report Type: 
  Country: None (occurrence: None)
  Receive Date: 20110811
  Receipt Date: 20110803
  Transmission Date: 20111222
  Serious: Yes (Hospitalization)
  Sender: FDA-Public Use
  Company Number: PHHO2010US07680

PATIENT
  Sex: Male
  Weight: 83.6 kg

DRUGS (3)
  1. ZORTRESS [Suspect]
     Indication: LIVER TRANSPLANT
     Dosage: 1.5 MG, Q12H
     Route: 048
     Dates: start: 20090723, end: 20110525
  2. AUGMENTIN '125' [Suspect]
     Indication: SINUSITIS
     Dosage: 500 MG, QD
     Route: 048
     Dates: start: 20100929, end: 20101006
  3. PROGRAF [Concomitant]
     Indication: LIVER TRANSPLANT
     Dosage: 1 MG, Q12H
     Dates: start: 20100622

REACTIONS (9)
  - TRANSAMINASES INCREASED [None]
  - PYREXIA [None]
  - PANCYTOPENIA [None]
  - ALCOHOL ABUSE [None]
  - RENAL FAILURE ACUTE [None]
  - FALL [None]
  - HEPATIC STEATOSIS [None]
  - HEPATIC ENZYME INCREASED [None]
  - CONCOMITANT DISEASE PROGRESSION [None]
